FAERS Safety Report 5692396-8 (Version None)
Quarter: 2008Q2

REPORT INFORMATION
  Report Type: 
  Country: None (occurrence: None)
  Receive Date: 20080328
  Receipt Date: 20080107
  Transmission Date: 20081010
  Serious: Yes (Other)
  Sender: FDA-Public Use
  Company Number: US-WYE-H02056108

PATIENT
  Age: 56 Year
  Sex: Male
  Weight: 56.75 kg

DRUGS (12)
  1. TORISEL [Suspect]
     Indication: RENAL CELL CARCINOMA STAGE IV
     Dosage: 25 MG 1X PER 1 WK, INTRAVENOUS : 25 MG 1X PER 1 WK, INTRAVENOUS
     Route: 042
     Dates: start: 20071212, end: 20071212
  2. TORISEL [Suspect]
     Indication: RENAL CELL CARCINOMA STAGE IV
     Dosage: 25 MG 1X PER 1 WK, INTRAVENOUS : 25 MG 1X PER 1 WK, INTRAVENOUS
     Route: 042
     Dates: start: 20071226, end: 20071226
  3. NAPROXEN [Concomitant]
  4. TOPROL-XL [Concomitant]
  5. SYNTHROID [Concomitant]
  6. NEUTRA-PHOS (POTASSIUM PHOSPHATE DIBASIC/POTASSIUM PHOSPHATE MONOBASIC [Concomitant]
  7. LEVAQUIN [Concomitant]
  8. VICODIN [Concomitant]
  9. PRILOSEC [Concomitant]
  10. OXYCONTIN [Concomitant]
  11. ACETAMINOPHEN [Concomitant]
  12. THORAZINE [Concomitant]

REACTIONS (1)
  - THROMBOCYTOPENIA [None]
